FAERS Safety Report 21520901 (Version 2)
Quarter: 2022Q4

REPORT INFORMATION
  Report Type: Spontaneous
  Country: US (occurrence: US)
  Receive Date: 20221028
  Receipt Date: 20221121
  Transmission Date: 20230113
  Serious: No
  Sender: FDA-Public Use
  Company Number: US-BIOGEN-2022BI01138730

PATIENT
  Age: 56 Year
  Sex: Female

DRUGS (11)
  1. VUMERITY [Suspect]
     Active Substance: DIROXIMEL FUMARATE
     Indication: Multiple sclerosis
     Route: 050
     Dates: start: 20220707, end: 20221002
  2. VUMERITY [Suspect]
     Active Substance: DIROXIMEL FUMARATE
     Route: 050
     Dates: start: 20220719
  3. VUMERITY [Suspect]
     Active Substance: DIROXIMEL FUMARATE
     Route: 050
     Dates: start: 20220718, end: 20221002
  4. BACLOFEN [Concomitant]
     Active Substance: BACLOFEN
     Route: 050
  5. LISINOPRIL [Concomitant]
     Active Substance: LISINOPRIL
     Route: 050
  6. MUCINEX [Concomitant]
     Active Substance: GUAIFENESIN
     Route: 050
  7. PAXLOVID [Concomitant]
     Active Substance: NIRMATRELVIR\RITONAVIR
     Dosage: 150-100
     Route: 050
  8. TOLTERODINE [Concomitant]
     Active Substance: TOLTERODINE
     Route: 050
  9. TOLTERODINE [Concomitant]
     Active Substance: TOLTERODINE
     Route: 050
  10. REBIF [Concomitant]
     Active Substance: INTERFERON BETA-1A
     Route: 050
  11. CETIZINE [Concomitant]
     Route: 050

REACTIONS (4)
  - Multiple sclerosis relapse [Not Recovered/Not Resolved]
  - Flushing [Not Recovered/Not Resolved]
  - Feeling hot [Not Recovered/Not Resolved]
  - Pruritus [Unknown]

NARRATIVE: CASE EVENT DATE: 20220701
